FAERS Safety Report 9475105 (Version 1)
Quarter: 2013Q3

REPORT INFORMATION
  Report Type: Spontaneous
  Country: US (occurrence: None)
  Receive Date: 20130822
  Receipt Date: 20130822
  Transmission Date: 20140515
  Serious: Yes (Disabling)
  Sender: FDA-Public Use
  Company Number: None

PATIENT
  Age: 46 Year
  Sex: Female
  Weight: 113.4 kg

DRUGS (1)
  1. TRANSDERM SCOP [Suspect]
     Indication: MOTION SICKNESS
     Dosage: 1PATCH
     Route: 061
     Dates: start: 20130807, end: 20130817

REACTIONS (9)
  - Vision blurred [None]
  - Motion sickness [None]
  - Nausea [None]
  - Decreased appetite [None]
  - Fatigue [None]
  - Depressed level of consciousness [None]
  - Headache [None]
  - Coordination abnormal [None]
  - Drug withdrawal syndrome [None]
